FAERS Safety Report 7564984-5 (Version None)
Quarter: 2011Q2

REPORT INFORMATION
  Report Type: 
  Country: None (occurrence: None)
  Receive Date: 20110622
  Receipt Date: 20110408
  Transmission Date: 20111010
  Serious: Yes (Other)
  Sender: FDA-Public Use
  Company Number: US-MYLANLABS-2011S1005414

PATIENT
  Age: 40 Year
  Sex: Male

DRUGS (12)
  1. CLOZAPINE [Suspect]
     Indication: SCHIZOPHRENIA
     Route: 048
     Dates: start: 20110303, end: 20110308
  2. CLOZAPINE [Suspect]
     Route: 048
     Dates: start: 20110313, end: 20110313
  3. CLOZAPINE [Suspect]
     Route: 048
     Dates: start: 20110314
  4. ZOCOR [Concomitant]
     Indication: BLOOD CHOLESTEROL INCREASED
     Route: 048
     Dates: start: 20100401
  5. CLOZAPINE [Suspect]
     Route: 048
     Dates: start: 20110303, end: 20110308
  6. CLOZAPINE [Suspect]
     Route: 048
     Dates: start: 20110312, end: 20110312
  7. NIACIN [Concomitant]
     Indication: BLOOD CHOLESTEROL INCREASED
     Route: 048
     Dates: start: 20100211
  8. ASPIRIN [Concomitant]
     Indication: BLOOD CHOLESTEROL INCREASED
     Route: 048
     Dates: start: 20100211
  9. FISH OIL [Concomitant]
     Indication: BLOOD CHOLESTEROL INCREASED
     Route: 048
     Dates: start: 20110211
  10. CLOZAPINE [Suspect]
     Route: 048
     Dates: start: 20110311, end: 20110311
  11. CLOZAPINE [Suspect]
     Route: 048
     Dates: start: 20110314
  12. LACTULOSE [Concomitant]
     Indication: PNEUMONIA
     Route: 048
     Dates: start: 20100801

REACTIONS (1)
  - GRANULOCYTOPENIA [None]
